FAERS Safety Report 15578559 (Version 2)
Quarter: 2019Q2

REPORT INFORMATION
  Report Type: Spontaneous
  Country: US (occurrence: US)
  Receive Date: 20181102
  Receipt Date: 20190527
  Transmission Date: 20190711
  Serious: Yes (Hospitalization)
  Sender: FDA-Public Use
  Company Number: US-SUN PHARMACEUTICAL INDUSTRIES LTD-2018US-190245

PATIENT
  Age: 28 Year
  Sex: Female

DRUGS (2)
  1. ASPIRIN. [Suspect]
     Active Substance: ASPIRIN
     Indication: PRODUCT USED FOR UNKNOWN INDICATION
     Dosage: 5 G
     Route: 048
  2. ACETAMINOPHEN. [Suspect]
     Active Substance: ACETAMINOPHEN
     Indication: PRODUCT USED FOR UNKNOWN INDICATION
     Dosage: 50 G
     Route: 048

REACTIONS (8)
  - Metabolic acidosis [Unknown]
  - Respiratory alkalosis [Unknown]
  - Premature delivery [Unknown]
  - Exposure during pregnancy [Unknown]
  - Overdose [Unknown]
  - Coagulation time prolonged [Unknown]
  - Suicide attempt [Unknown]
  - Hypoacusis [Unknown]
